FAERS Safety Report 16853706 (Version 1)
Quarter: 2019Q3

REPORT INFORMATION
  Report Type: Spontaneous
  Country: CA (occurrence: CA)
  Receive Date: 20190926
  Receipt Date: 20190926
  Transmission Date: 20191005
  Serious: Yes (Other)
  Sender: FDA-Public Use
  Company Number: CA-B.I. PHARMACEUTICALS,INC./RIDGEFIELD-2019-BI-103908

PATIENT
  Age: 76 Year
  Sex: Male

DRUGS (5)
  1. SPIRIVA [Suspect]
     Active Substance: TIOTROPIUM BROMIDE MONOHYDRATE
     Indication: PRODUCT USED FOR UNKNOWN INDICATION
     Route: 055
  2. VENTOLIN [GUAIFENESIN;SALBUTAMOL SULFATE] [Suspect]
     Active Substance: ALBUTEROL\GUAIFENESIN
     Indication: PRODUCT USED FOR UNKNOWN INDICATION
     Route: 055
  3. MEPOLIZUMAB [Suspect]
     Active Substance: MEPOLIZUMAB
     Indication: ASTHMA
     Route: 042
  4. UNIPHYL [Suspect]
     Active Substance: THEOPHYLLINE ANHYDROUS
     Indication: PRODUCT USED FOR UNKNOWN INDICATION
     Dosage: TABLET (EXTENDED RELEASE)
     Route: 065
  5. BREO ELLIPTA [Suspect]
     Active Substance: FLUTICASONE FUROATE\VILANTEROL TRIFENATATE
     Indication: PRODUCT USED FOR UNKNOWN INDICATION
     Route: 055

REACTIONS (12)
  - Asthma [Not Recovered/Not Resolved]
  - Rhinitis [Not Recovered/Not Resolved]
  - Impaired quality of life [Not Recovered/Not Resolved]
  - Malaise [Not Recovered/Not Resolved]
  - Obesity [Not Recovered/Not Resolved]
  - Product use issue [Not Recovered/Not Resolved]
  - Gait disturbance [Not Recovered/Not Resolved]
  - Breath sounds [Not Recovered/Not Resolved]
  - Bronchial obstruction [Not Recovered/Not Resolved]
  - Nasopharyngitis [Not Recovered/Not Resolved]
  - Bronchitis [Not Recovered/Not Resolved]
  - Discomfort [Not Recovered/Not Resolved]
